FAERS Safety Report 6065337-1 (Version None)
Quarter: 2009Q1

REPORT INFORMATION
  Report Type: 
  Country: None (occurrence: None)
  Receive Date: 20090204
  Receipt Date: 20090127
  Transmission Date: 20090719
  Serious: Yes (Hospitalization)
  Sender: FDA-Public Use
  Company Number: US-BAYER-200911025NA

PATIENT
  Age: 35 Year
  Sex: Male
  Weight: 77 kg

DRUGS (1)
  1. MAGNEVIST [Suspect]
     Indication: NUCLEAR MAGNETIC RESONANCE IMAGING
     Dosage: TOTAL DAILY DOSE: 17 ML  UNIT DOSE: 100 ML
     Route: 042
     Dates: start: 20090113, end: 20090113

REACTIONS (4)
  - DIZZINESS [None]
  - HYPERHIDROSIS [None]
  - HYPOAESTHESIA [None]
  - THROAT TIGHTNESS [None]
